FAERS Safety Report 9503312 (Version 1)
Quarter: 2013Q3

REPORT INFORMATION
  Report Type: Report from Study
  Country: DE (occurrence: DE)
  Receive Date: 20130906
  Receipt Date: 20130906
  Transmission Date: 20140515
  Serious: Yes (Hospitalization)
  Sender: FDA-Public Use
  Company Number: DE-ROCHE-774044

PATIENT
  Age: 52 Year
  Sex: Male
  Weight: 92 kg

DRUGS (4)
  1. BEVACIZUMAB [Suspect]
     Indication: COLON CANCER
     Dosage: AT THE MOMENT IN STAGEING PAUSE AFTER 6 CYCLES (LAST CYCLE ADMINISTRATION GIVEN ON 21 MAR 2011.
     Route: 042
     Dates: start: 20110124, end: 20110321
  2. OXALIPLATIN [Suspect]
     Indication: COLON CANCER
     Dosage: AT THE MOMENT IN STAGEING PAUSE AFTER 6 CYCLES (LAST CYCLE ADMINISTRATION GIVEN ON 21 MAR 2011.
     Route: 042
     Dates: start: 20110110, end: 20110321
  3. 5-FU [Suspect]
     Indication: COLON CANCER
     Dosage: AT THE MOMENT IN STAGEING PAUSE AFTER 6 CYCLES (LAST CYCLE ADMINISTRATION GIVEN ON 21 MAR 2011.
     Route: 042
     Dates: start: 20110110, end: 20110321
  4. FOLINIC ACID [Concomitant]
     Indication: COLON CANCER
     Dosage: AT THE MOMENT IN STAGEING PAUSE AFTER 6 CYCLES (LAST CYCLE ADMINISTRATION GIVEN ON 21 MAR 2011.
     Route: 042
     Dates: start: 20110110, end: 20110321

REACTIONS (4)
  - Abdominal pain [Recovered/Resolved]
  - Pyrexia [Recovered/Resolved]
  - Nausea [Recovered/Resolved]
  - Disease progression [Unknown]
